FAERS Safety Report 5712004-7 (Version None)
Quarter: 2008Q2

REPORT INFORMATION
  Report Type: 
  Country: None (occurrence: None)
  Receive Date: 20080417
  Receipt Date: 20080328
  Transmission Date: 20081010
  Serious: Yes (Other)
  Sender: FDA-Public Use
  Company Number: 2008009339

PATIENT
  Age: 3 Year
  Sex: Male

DRUGS (1)
  1. CETIRIZINE HCL [Suspect]
     Dosage: ORAL
     Route: 048

REACTIONS (3)
  - ACCIDENTAL EXPOSURE [None]
  - INCORRECT DOSE ADMINISTERED [None]
  - MALAISE [None]
